FAERS Safety Report 7797897-4 (Version None)
Quarter: 2011Q4

REPORT INFORMATION
  Report Type: 
  Country: None (occurrence: None)
  Receive Date: 20111005
  Receipt Date: 20110927
  Transmission Date: 20120403
  Serious: Yes (Other)
  Sender: FDA-Public Use
  Company Number: DE-JNJFOC-20110910523

PATIENT
  Age: 3 Year
  Sex: Male

DRUGS (1)
  1. DOXORUBICIN HCL [Suspect]
     Indication: RHABDOID TUMOUR OF THE KIDNEY
     Route: 042

REACTIONS (2)
  - SKIN TOXICITY [None]
  - OFF LABEL USE [None]
